FAERS Safety Report 6632949-3 (Version None)
Quarter: 2010Q1

REPORT INFORMATION
  Report Type: 
  Country: None (occurrence: None)
  Receive Date: 20100312
  Receipt Date: 20100216
  Transmission Date: 20100710
  Serious: No
  Sender: FDA-Public Use
  Company Number: US-BIOGENIDEC-2010BI005436

PATIENT
  Age: 47 Year
  Sex: Female

DRUGS (2)
  1. AVONEX [Suspect]
     Indication: MULTIPLE SCLEROSIS
     Route: 030
     Dates: start: 19970901, end: 20070101
  2. AVONEX [Suspect]
     Route: 030
     Dates: start: 20070101

REACTIONS (10)
  - BLOOD CHOLESTEROL INCREASED [None]
  - CRYING [None]
  - DYSPHAGIA [None]
  - EXOSTOSIS [None]
  - HAEMATOMA [None]
  - HALLUCINATION [None]
  - INFLUENZA LIKE ILLNESS [None]
  - MUSCLE SPASMS [None]
  - MUSCULOSKELETAL PAIN [None]
  - REACTION TO PRESERVATIVES [None]
